FAERS Safety Report 5206856-7 (Version None)
Quarter: 2006Q4

REPORT INFORMATION
  Report Type: 
  Country: None (occurrence: None)
  Receive Date: 20061030
  Receipt Date: 20060828
  Transmission Date: 20070319
  Serious: No
  Sender: FDA-Public Use
  Company Number: 256421

PATIENT
  Age: 70 Year
  Sex: Male
  Weight: 121.5 kg

DRUGS (3)
  1. LEVEMIR [Suspect]
     Indication: INSULIN-REQUIRING TYPE II DIABETES MELLITUS
     Dosage: 44 IU, QD AT H.S., SUBCUTANEOUS; SEE IMAGE
     Route: 058
     Dates: start: 20060806, end: 20060825
  2. LEVEMIR [Suspect]
     Indication: INSULIN-REQUIRING TYPE II DIABETES MELLITUS
     Dosage: 44 IU, QD AT H.S., SUBCUTANEOUS; SEE IMAGE
     Route: 058
     Dates: start: 20060825
  3. HUMALOG [Concomitant]

REACTIONS (1)
  - ANXIETY [None]
